FAERS Safety Report 14015306 (Version 1)
Quarter: 2017Q3

REPORT INFORMATION
  Report Type: Spontaneous
  Country: US (occurrence: None)
  Receive Date: 20170927
  Receipt Date: 20170927
  Transmission Date: 20171128
  Serious: Yes (Other)
  Sender: FDA-Public Use
  Company Number: None

PATIENT
  Age: 68 Year
  Sex: Male
  Weight: 102.06 kg

DRUGS (4)
  1. 1 A DAY MULTI VITAMINS [Concomitant]
  2. 81 MG ASPIRIN [Concomitant]
     Active Substance: ASPIRIN
  3. BUPROPION XL 300MG TABLETS ZYDUS [Suspect]
     Active Substance: BUPROPION
     Indication: DEPRESSION
     Route: 048
  4. EFFEXOR [Concomitant]
     Active Substance: VENLAFAXINE HYDROCHLORIDE

REACTIONS (5)
  - Urticaria [None]
  - Paraplegia [None]
  - Product substitution issue [None]
  - Hypersensitivity [None]
  - Pruritus [None]
